FAERS Safety Report 24815594 (Version 3)
Quarter: 2025Q1

REPORT INFORMATION
  Report Type: Spontaneous
  Country: US (occurrence: US)
  Receive Date: 20250107
  Receipt Date: 20250312
  Transmission Date: 20250409
  Serious: No
  Sender: CALLIDITAS THERAPEUTICS AB
  Company Number: US-Calliditas-2024CAL02963

PATIENT
  Age: 76 Year
  Sex: Female

DRUGS (3)
  1. TARPEYO [Suspect]
     Active Substance: BUDESONIDE
     Indication: IgA nephropathy
     Route: 048
     Dates: start: 20241009
  2. LOSARTAN [Concomitant]
     Active Substance: LOSARTAN
  3. XANAX [Concomitant]
     Active Substance: ALPRAZOLAM

REACTIONS (5)
  - COVID-19 [Unknown]
  - Anxiety [Unknown]
  - Fatigue [Unknown]
  - Poor quality sleep [Unknown]
  - Prescribed underdose [Unknown]
